FAERS Safety Report 11382046 (Version 7)
Quarter: 2019Q4

REPORT INFORMATION
  Report Type: Report from Study
  Country: US (occurrence: US)
  Receive Date: 20150814
  Receipt Date: 20191118
  Transmission Date: 20200122
  Serious: Yes (Hospitalization, Other)
  Sender: FDA-Public Use
  Company Number: PHHY2015US043222

PATIENT
  Age: 58 Year
  Sex: Female
  Weight: 78.4 kg

DRUGS (3)
  1. GILENYA [Suspect]
     Active Substance: FINGOLIMOD HYDROCHLORIDE
     Indication: MULTIPLE SCLEROSIS
     Dosage: 0.5 MG, QD
     Route: 048
     Dates: start: 20140903
  2. LORAZEPAM. [Concomitant]
     Active Substance: LORAZEPAM
     Indication: ANXIETY
     Dosage: UNK
     Route: 065
     Dates: start: 20151013
  3. NEXIUM [Concomitant]
     Active Substance: ESOMEPRAZOLE MAGNESIUM
     Indication: HIATUS HERNIA
     Dosage: UNK
     Route: 065
     Dates: start: 20150101, end: 20150420

REACTIONS (18)
  - Conjunctivitis [Recovered/Resolved]
  - Lymphocyte percentage decreased [Unknown]
  - Cough [Unknown]
  - Pneumonia [Recovered/Resolved]
  - Sinusitis [Recovered/Resolved]
  - Epistaxis [Unknown]
  - White blood cell count decreased [Unknown]
  - Aspartate aminotransferase increased [Unknown]
  - Pneumonia [Unknown]
  - Pneumonia [Recovered/Resolved]
  - Pain in extremity [Unknown]
  - Paraesthesia [Unknown]
  - Lung infiltration [Unknown]
  - Bronchitis [Recovered/Resolved]
  - High density lipoprotein increased [Unknown]
  - Fall [Recovered/Resolved]
  - Upper respiratory tract infection [Unknown]
  - Visual impairment [Unknown]

NARRATIVE: CASE EVENT DATE: 20150101
